FAERS Safety Report 8996791 (Version 1)
Quarter: 2012Q4

REPORT INFORMATION
  Report Type: Spontaneous
  Country: US (occurrence: None)
  Receive Date: 20121228
  Receipt Date: 20121228
  Transmission Date: 20130627
  Serious: Yes (Other)
  Sender: FDA-Public Use
  Company Number: None

PATIENT
  Age: 60 Year
  Sex: Female
  Weight: 65.32 kg

DRUGS (4)
  1. LIPITOR [Suspect]
     Indication: MYOCARDIAL INFARCTION PROPHYLAXIS
     Dosage: 20 mg  1 Pill Daily
     Dates: start: 200901
  2. LIPITOR [Suspect]
     Indication: CEREBROVASCULAR ACCIDENT PROPHYLAXIS
     Dosage: 20 mg  1 Pill Daily
     Dates: start: 200901
  3. LIPITOR [Suspect]
     Indication: MYOCARDIAL INFARCTION PROPHYLAXIS
     Dates: start: 201001, end: 201211
  4. LIPITOR [Suspect]
     Indication: CEREBROVASCULAR ACCIDENT PROPHYLAXIS
     Dates: start: 201001, end: 201211

REACTIONS (4)
  - Sensation of foreign body [None]
  - Haemorrhage [None]
  - Product contamination physical [None]
  - Product quality issue [None]
